FAERS Safety Report 7265384-8 (Version None)
Quarter: 2011Q1

REPORT INFORMATION
  Report Type: 
  Country: None (occurrence: None)
  Receive Date: 20110131
  Receipt Date: 20110127
  Transmission Date: 20110831
  Serious: Yes (Hospitalization)
  Sender: FDA-Public Use
  Company Number: DE-ABBOTT-11P-062-0701074-00

PATIENT
  Sex: Male
  Weight: 72 kg

DRUGS (7)
  1. AZATHIOPRINE [Concomitant]
     Indication: CROHN'S DISEASE
     Dosage: 150MG OD
     Dates: start: 20101227
  2. PANTOPRAZOL [Concomitant]
     Indication: GASTRITIS
     Dosage: 40MG OD
     Route: 048
     Dates: start: 20101227
  3. THYRONAJOD [Concomitant]
     Indication: GOITRE
     Dosage: 25MCG OD
     Route: 048
     Dates: start: 20080101
  4. HUMIRA [Suspect]
     Indication: CROHN'S DISEASE
     Route: 058
     Dates: start: 20080825, end: 20091019
  5. HUMIRA [Suspect]
     Route: 058
     Dates: start: 20101119, end: 20110119
  6. DECORTIN [Concomitant]
     Indication: CROHN'S DISEASE
     Dosage: 60-40 MG TWICE DAILY
     Route: 048
     Dates: start: 20101227
  7. MUTAFLOR [Concomitant]
     Indication: CROHN'S DISEASE
     Dosage: 100MG DAILY
     Route: 048
     Dates: start: 20101227

REACTIONS (1)
  - COLITIS ULCERATIVE [None]
